FAERS Safety Report 14680033 (Version 1)
Quarter: 2018Q1

REPORT INFORMATION
  Report Type: Spontaneous
  Country: US (occurrence: US)
  Receive Date: 20180325
  Receipt Date: 20180325
  Transmission Date: 20180509
  Serious: Yes (Disabling)
  Sender: FDA-Public Use
  Company Number: None

PATIENT
  Age: 33 Year
  Sex: Female
  Weight: 56.25 kg

DRUGS (2)
  1. MULTI VITAMIN [Concomitant]
     Active Substance: VITAMINS
  2. CREST PRO-HEALTH MULTI-PROTECTION REFRESHING CLEAN MINT [Suspect]
     Active Substance: CETYLPYRIDINIUM CHLORIDE
     Indication: GINGIVITIS
     Dosage: TWICE A DAY ORAL, 4 TEASPOON(S)?
     Route: 048
     Dates: start: 20180323, end: 20180324

REACTIONS (3)
  - Toxicity to various agents [None]
  - Hypogeusia [None]
  - Dysgeusia [None]

NARRATIVE: CASE EVENT DATE: 20180324
